FAERS Safety Report 21495422 (Version 3)
Quarter: 2023Q2

REPORT INFORMATION
  Report Type: Spontaneous
  Country: PT (occurrence: PT)
  Receive Date: 20221022
  Receipt Date: 20230510
  Transmission Date: 20230722
  Serious: Yes (Hospitalization, Other)
  Sender: FDA-Public Use
  Company Number: PT-GRUNENTHAL-2022-108215

PATIENT
  Age: 28 Year
  Sex: Female

DRUGS (5)
  1. TRAMADOL [Interacting]
     Active Substance: TRAMADOL
     Indication: Analgesic therapy
     Dosage: UNK
     Route: 042
  2. ROPIVACAINE [Suspect]
     Active Substance: ROPIVACAINE
     Indication: Analgesic therapy
     Dosage: UNK
     Route: 008
  3. ROPIVACAINE [Suspect]
     Active Substance: ROPIVACAINE
     Indication: Epidural analgesia
  4. SUFENTANIL [Suspect]
     Active Substance: SUFENTANIL
     Indication: Epidural analgesia
     Dosage: UNK (PROGRAMMED INTERMITTENT EPIDURAL BOLUSES)
     Route: 008
  5. FENTANYL [Concomitant]
     Active Substance: FENTANYL
     Indication: Analgesic therapy
     Route: 008

REACTIONS (6)
  - Generalised tonic-clonic seizure [Recovered/Resolved]
  - Respiratory arrest [Recovered/Resolved]
  - Bradycardia foetal [Recovered/Resolved]
  - Caesarean section [Recovered/Resolved]
  - Inadequate analgesia [Unknown]
  - Maternal exposure during pregnancy [Recovered/Resolved]
